FAERS Safety Report 4386114-3 (Version None)
Quarter: 2004Q2

REPORT INFORMATION
  Report Type: 
  Country: None (occurrence: None)
  Receive Date: 20040625
  Receipt Date: 20040625
  Transmission Date: 20050107
  Serious: Yes (Other)
  Sender: FDA-Public Use
  Company Number: None

PATIENT
  Age: 31 Year
  Sex: Female
  Weight: 83.9154 kg

DRUGS (1)
  1. TUBERCULIN PURIFIED PROTEIN DERIVATIVE MANTOUS TUBERSOL 5 US UNITS PER [Suspect]
     Indication: DERMATITIS ALLERGIC
     Dosage: 0.1 ML INTRADERMAL
     Route: 023

REACTIONS (2)
  - INJECTION SITE RASH [None]
  - RASH [None]
